FAERS Safety Report 10265924 (Version 1)
Quarter: 2014Q2

REPORT INFORMATION
  Report Type: Spontaneous
  Country: US (occurrence: US)
  Receive Date: 20140627
  Receipt Date: 20140627
  Transmission Date: 20141212
  Serious: Yes (Death, Hospitalization, Other)
  Sender: FDA-Public Use
  Company Number: US-CUBIST PHARMACEUTICAL, INC.-2014CBST000910

PATIENT
  Sex: 0

DRUGS (20)
  1. CUBICIN [Suspect]
     Indication: ENTEROCOCCAL INFECTION
     Dosage: 6 MG/KG, QD
     Route: 042
  2. CUBICIN [Suspect]
     Indication: ENTEROCOCCAL BACTERAEMIA
     Dosage: 8 MG/KG, QD
     Route: 042
  3. CUBICIN [Suspect]
     Indication: CENTRAL NERVOUS SYSTEM INFECTION
     Dosage: 5 MG, Q48H, INTRAVENTRICULAR
  4. CUBICIN [Suspect]
     Indication: OFF LABEL USE
  5. GENTAMICIN [Concomitant]
     Indication: ENTEROCOCCAL BACTERAEMIA
     Dosage: 1 MG/KG, Q8H
     Route: 042
  6. GENTAMICIN [Concomitant]
     Indication: ENTEROCOCCAL INFECTION
     Dosage: 4 MG, QD, INTRAVENTRICULAR
  7. GENTAMICIN [Concomitant]
     Indication: CENTRAL NERVOUS SYSTEM INFECTION
  8. LINEZOLID [Concomitant]
     Indication: ENTEROCOCCAL BACTERAEMIA
     Dosage: 600 MG, Q12H
     Route: 048
  9. LINEZOLID [Concomitant]
     Indication: ENTEROCOCCAL INFECTION
  10. LINEZOLID [Concomitant]
     Indication: CENTRAL NERVOUS SYSTEM INFECTION
  11. RIFAMPIN [Concomitant]
     Indication: ENTEROCOCCAL BACTERAEMIA
     Dosage: 300 MG, Q8H
     Route: 048
  12. RIFAMPIN [Concomitant]
     Indication: ENTEROCOCCAL INFECTION
  13. RIFAMPIN [Concomitant]
     Indication: CENTRAL NERVOUS SYSTEM INFECTION
  14. CHLORAMPHENICOL [Concomitant]
     Indication: ENTEROCOCCAL BACTERAEMIA
     Dosage: 500 MG, Q6H
     Route: 042
  15. CHLORAMPHENICOL [Concomitant]
     Indication: ENTEROCOCCAL INFECTION
  16. CHLORAMPHENICOL [Concomitant]
     Indication: CENTRAL NERVOUS SYSTEM INFECTION
  17. VANCOMYCIN [Concomitant]
     Indication: ENTEROCOCCAL INFECTION
     Dosage: 15 MG, QD, INTRAVENTRICULAR
  18. VANCOMYCIN [Concomitant]
     Indication: CENTRAL NERVOUS SYSTEM INFECTION
  19. DALFOPRISTIN W/QUINUPRISTIN [Concomitant]
     Indication: ENTEROCOCCAL INFECTION
     Dosage: 2 MG, QD, INTRAVENTRICULAR
  20. DALFOPRISTIN W/QUINUPRISTIN [Concomitant]
     Indication: CENTRAL NERVOUS SYSTEM INFECTION

REACTIONS (8)
  - Cytomegalovirus viraemia [Fatal]
  - Lower gastrointestinal haemorrhage [Unknown]
  - Streptococcal bacteraemia [Unknown]
  - Hemiparesis [Unknown]
  - Status epilepticus [Unknown]
  - Mental status changes [Unknown]
  - Lethargy [Unknown]
  - Headache [Unknown]
